FAERS Safety Report 20732955 (Version 5)
Quarter: 2022Q3

REPORT INFORMATION
  Report Type: Report from Study
  Country: AT (occurrence: AT)
  Receive Date: 20220420
  Receipt Date: 20220812
  Transmission Date: 20221027
  Serious: Yes (Death, Life-Threatening, Hospitalization, Other)
  Sender: FDA-Public Use
  Company Number: AT-BRISTOL-MYERS SQUIBB COMPANY-2022-018848

PATIENT
  Age: 74 Year
  Sex: Male
  Weight: 100 kg

DRUGS (17)
  1. AZACITIDINE [Suspect]
     Active Substance: AZACITIDINE
     Indication: Myelodysplastic syndrome
     Dosage: 1-7 DAYS WITHIN THE FIRST 9 CALENDAR DAYS PER 28-DAY CYCLE
     Route: 058
     Dates: start: 20220310, end: 20220413
  2. VENETOCLAX [Suspect]
     Active Substance: VENETOCLAX
     Indication: Myelodysplastic syndrome
     Dosage: 14 DAYS ON, 14 DAYS OFF (CYCLE =28 DAYS)
     Route: 048
     Dates: start: 20220310, end: 20220323
  3. ALLOPURINOL [Concomitant]
     Active Substance: ALLOPURINOL
     Indication: Hyperuricaemia
     Route: 048
  4. ALLOPURINOL [Concomitant]
     Active Substance: ALLOPURINOL
     Route: 048
  5. ALLOPURINOL [Concomitant]
     Active Substance: ALLOPURINOL
     Route: 048
     Dates: start: 20220411, end: 20220518
  6. ALLOPURINOL [Concomitant]
     Active Substance: ALLOPURINOL
     Route: 048
     Dates: start: 2014, end: 20220401
  7. ASPIRIN [Concomitant]
     Active Substance: ASPIRIN
     Indication: Thrombosis prophylaxis
     Dosage: 1 IN 1 D
     Route: 048
     Dates: end: 20220330
  8. ASPIRIN [Concomitant]
     Active Substance: ASPIRIN
     Route: 048
     Dates: start: 2014, end: 20220330
  9. NEBIVOLOL HYDROCHLORIDE [Concomitant]
     Active Substance: NEBIVOLOL HYDROCHLORIDE
     Indication: Hypertension
     Dosage: 1 IN 1 D
     Route: 048
     Dates: end: 20220401
  10. NEBIVOLOL HYDROCHLORIDE [Concomitant]
     Active Substance: NEBIVOLOL HYDROCHLORIDE
     Dosage: 1 IN 1 D
     Route: 048
     Dates: start: 2014, end: 20220401
  11. DIOVAN [Concomitant]
     Active Substance: VALSARTAN
     Indication: Hypertension
     Dosage: 1 IN 1 D
     Route: 048
     Dates: end: 20220401
  12. DIOVAN [Concomitant]
     Active Substance: VALSARTAN
     Dosage: 1 AS REQUIRED
     Route: 048
     Dates: end: 20220516
  13. DIOVAN [Concomitant]
     Active Substance: VALSARTAN
     Dosage: 1 IN 1 D
     Route: 048
     Dates: start: 202202, end: 20220401
  14. DIOVAN [Concomitant]
     Active Substance: VALSARTAN
     Dosage: 1 AS REQUIRED
     Route: 048
     Dates: start: 20220411, end: 20220516
  15. TAMSULOSIN [Concomitant]
     Active Substance: TAMSULOSIN
     Indication: Benign prostatic hyperplasia
     Dosage: 1 IN 1 D
     Route: 048
     Dates: end: 20220510
  16. ATORVASTATIN [Concomitant]
     Active Substance: ATORVASTATIN
     Indication: Hypercholesterolaemia
     Dosage: 1 IN 1 D
     Route: 048
     Dates: start: 2022
  17. BISOPROLOL FUMARATE [Concomitant]
     Active Substance: BISOPROLOL FUMARATE
     Indication: Hypertension
     Route: 048
     Dates: start: 20220511, end: 20220517

REACTIONS (2)
  - Transformation to acute myeloid leukaemia [Fatal]
  - Neutropenic sepsis [Unknown]

NARRATIVE: CASE EVENT DATE: 20220331
